FAERS Safety Report 5422901-8 (Version None)
Quarter: 2007Q3

REPORT INFORMATION
  Report Type: 
  Country: None (occurrence: None)
  Receive Date: 20070822
  Receipt Date: 20070810
  Transmission Date: 20080115
  Serious: Yes (Other)
  Sender: FDA-Public Use
  Company Number: US-PFIZER INC-2007067135

PATIENT

DRUGS (2)
  1. LYRICA [Suspect]
     Indication: FIBROMYALGIA
  2. BACTRIM [Suspect]
     Indication: URINARY TRACT INFECTION

REACTIONS (2)
  - DRUG ERUPTION [None]
  - RASH MACULAR [None]
